FAERS Safety Report 9008747 (Version 2)
Quarter: 2014Q1

REPORT INFORMATION
  Report Type: Spontaneous
  Country: ES (occurrence: ES)
  Receive Date: 20130111
  Receipt Date: 20140314
  Transmission Date: 20141002
  Serious: Yes (Other)
  Sender: FDA-Public Use
  Company Number: ES-JNJFOC-20130103104

PATIENT
  Age: 38 Year
  Sex: Male

DRUGS (5)
  1. ETRAVIRINE [Suspect]
     Indication: HIV INFECTION
     Route: 065
  2. TELAPREVIR [Suspect]
     Indication: HEPATITIS C
     Route: 065
  3. PEG-INTERFERON [Suspect]
     Indication: HEPATITIS C
     Route: 065
  4. RIBAVIRIN [Suspect]
     Indication: HEPATITIS C
     Route: 065
  5. RALTEGRAVIR [Concomitant]
     Indication: HIV INFECTION
     Route: 065

REACTIONS (5)
  - Infection [Unknown]
  - Thrombocytopenia [Unknown]
  - Bronchospasm [Unknown]
  - Anaemia [Unknown]
  - Hypophosphataemia [Unknown]
